FAERS Safety Report 7931394-8 (Version None)
Quarter: 2011Q4

REPORT INFORMATION
  Report Type: 
  Country: None (occurrence: None)
  Receive Date: 20111121
  Receipt Date: 20111110
  Transmission Date: 20120403
  Serious: Yes (Hospitalization)
  Sender: FDA-Public Use
  Company Number: US-ENDO PHARMACEUTICALS INC.-OXYC20110088

PATIENT
  Sex: Female
  Weight: 40.86 kg

DRUGS (1)
  1. OXYCODONE HCL [Suspect]
     Indication: PAIN
     Route: 048
     Dates: start: 20110701, end: 20110701

REACTIONS (2)
  - WEIGHT DECREASED [None]
  - DIARRHOEA [None]
